FAERS Safety Report 14532846 (Version 2)
Quarter: 2018Q2

REPORT INFORMATION
  Report Type: Report from Study
  Country: JP (occurrence: JP)
  Receive Date: 20180214
  Receipt Date: 20180517
  Transmission Date: 20180711
  Serious: Yes (Hospitalization, Other)
  Sender: FDA-Public Use
  Company Number: JP-AMGEN-JPNNI2018020940

PATIENT
  Age: 62 Year
  Sex: Female
  Weight: 50 kg

DRUGS (16)
  1. PACLITAXEL. [Suspect]
     Active Substance: PACLITAXEL
     Dosage: 250 MG, UNK
     Route: 041
     Dates: start: 20170111, end: 20170111
  2. CARBOPLATIN. [Suspect]
     Active Substance: CARBOPLATIN
     Dosage: 700 MG, UNK
     Route: 041
     Dates: start: 20170111, end: 20170111
  3. PEGFILGRASTIM [Suspect]
     Active Substance: PEGFILGRASTIM
     Indication: COLONY STIMULATING FACTOR PROPHYLAXIS
     Dosage: 3.6 MG, UNK
     Route: 058
     Dates: start: 20161214, end: 20161214
  4. PEGFILGRASTIM [Suspect]
     Active Substance: PEGFILGRASTIM
     Dosage: 3.6 MG, UNK
     Route: 058
     Dates: start: 20170316, end: 20170316
  5. CARBOPLATIN. [Suspect]
     Active Substance: CARBOPLATIN
     Dosage: 560 MG, UNK
     Route: 041
     Dates: start: 20170315, end: 20170315
  6. BEVACIZUMAB. [Concomitant]
     Active Substance: BEVACIZUMAB
     Dosage: 750 MG, UNK
     Route: 041
     Dates: start: 20170111, end: 20170111
  7. PEGFILGRASTIM [Suspect]
     Active Substance: PEGFILGRASTIM
     Dosage: 3.6 MG, UNK
     Route: 058
     Dates: start: 20170209, end: 20170209
  8. PEGFILGRASTIM [Suspect]
     Active Substance: PEGFILGRASTIM
     Dosage: 3.6 MG, UNK
     Route: 058
     Dates: start: 20170112, end: 20170112
  9. CARBOPLATIN. [Suspect]
     Active Substance: CARBOPLATIN
     Indication: FALLOPIAN TUBE CANCER
     Dosage: 700 MG, UNK
     Route: 041
     Dates: start: 20161213, end: 20161213
  10. CARBOPLATIN. [Suspect]
     Active Substance: CARBOPLATIN
     Dosage: 700 MG, UNK
     Route: 041
     Dates: start: 20170208, end: 20170208
  11. BEVACIZUMAB. [Concomitant]
     Active Substance: BEVACIZUMAB
     Dosage: 750 MG, UNK
     Route: 041
     Dates: start: 20170315, end: 20170315
  12. BEVACIZUMAB. [Concomitant]
     Active Substance: BEVACIZUMAB
     Dosage: 750 MG, UNK
     Route: 041
     Dates: start: 20170208, end: 20170208
  13. PACLITAXEL. [Suspect]
     Active Substance: PACLITAXEL
     Indication: FALLOPIAN TUBE CANCER
     Dosage: 250 MG, UNK
     Route: 041
     Dates: start: 20161213, end: 20161213
  14. PACLITAXEL. [Suspect]
     Active Substance: PACLITAXEL
     Dosage: 250 MG, UNK
     Route: 041
     Dates: start: 20170208, end: 20170208
  15. PACLITAXEL. [Suspect]
     Active Substance: PACLITAXEL
     Dosage: 200 MG, UNK
     Route: 041
     Dates: start: 20170315, end: 20170315
  16. BEVACIZUMAB. [Concomitant]
     Active Substance: BEVACIZUMAB
     Indication: FALLOPIAN TUBE CANCER
     Dosage: 750 MG, UNK
     Route: 041
     Dates: start: 20161213, end: 20161213

REACTIONS (2)
  - Blast cell count increased [Recovered/Resolved]
  - Bone marrow failure [Recovered/Resolved]

NARRATIVE: CASE EVENT DATE: 20170214
